FAERS Safety Report 4607040-8 (Version None)
Quarter: 2005Q1

REPORT INFORMATION
  Report Type: 
  Country: None (occurrence: None)
  Receive Date: 20050310
  Receipt Date: 20050228
  Transmission Date: 20050727
  Serious: Yes (Hospitalization)
  Sender: FDA-Public Use
  Company Number: HQWYE738901MAR05

PATIENT
  Age: 23 Year
  Sex: Female
  Weight: 63.7 kg

DRUGS (3)
  1. MYLOTARG [Suspect]
     Indication: ACUTE MYELOID LEUKAEMIA
     Dosage: 10.8 MG 1X PER 1 DAY, INTRAVENOUS
     Route: 042
     Dates: start: 20050112, end: 20050112
  2. MYLOTARG [Suspect]
     Dosage: 7.2 MG 1X PER 1 DAY, INTRAVENOUS
     Route: 042
     Dates: start: 20050119, end: 20050119
  3. CYTARABINE [Concomitant]

REACTIONS (2)
  - FEBRILE NEUTROPENIA [None]
  - WHITE BLOOD CELL COUNT DECREASED [None]
